FAERS Safety Report 17447624 (Version 1)
Quarter: 2020Q1

REPORT INFORMATION
  Report Type: Spontaneous
  Country: US (occurrence: US)
  Receive Date: 20200221
  Receipt Date: 20200221
  Transmission Date: 20200409
  Serious: No
  Sender: FDA-Public Use
  Company Number: US-BIODELIVERY SCIENCES INTERNATIONAL-2019BDSI0860

PATIENT
  Sex: Female

DRUGS (4)
  1. BUPRENORPHINE. [Suspect]
     Active Substance: BUPRENORPHINE
     Route: 002
  2. BUPRENORPHINE. [Suspect]
     Active Substance: BUPRENORPHINE
     Indication: PAIN
     Dosage: UNKNOWN
     Route: 002
  3. NO DRUG NAME [Concomitant]
     Active Substance: UNSPECIFIED INGREDIENT
     Indication: BACK PAIN
     Dosage: UNKNOWN
     Dates: start: 2017
  4. BUPRENORPHINE. [Suspect]
     Active Substance: BUPRENORPHINE
     Dosage: UNKNOWN
     Route: 002

REACTIONS (8)
  - Insomnia [Unknown]
  - Wrong technique in product usage process [Recovered/Resolved]
  - Anxiety [Recovered/Resolved]
  - Therapeutic response decreased [Recovered/Resolved]
  - Product adhesion issue [Unknown]
  - Intentional dose omission [Unknown]
  - Oral administration complication [Unknown]
  - Product administration error [Unknown]

NARRATIVE: CASE EVENT DATE: 20191028
